FAERS Safety Report 7423505-8 (Version None)
Quarter: 2011Q2

REPORT INFORMATION
  Report Type: 
  Country: None (occurrence: None)
  Receive Date: 20110419
  Receipt Date: 20110415
  Transmission Date: 20111010
  Serious: Yes (Other)
  Sender: FDA-Public Use
  Company Number: JP-PFIZER INC-2011083257

PATIENT
  Age: 51 Year
  Sex: Female
  Weight: 79 kg

DRUGS (2)
  1. CAMPTOSAR [Suspect]
     Indication: COLON CANCER
     Dosage: 270 MG/BODY (150 MG/M2)
     Route: 041
  2. CETUXIMAB [Concomitant]
     Indication: COLON CANCER
     Dosage: 720 MG/BODY (400 MG/M2)
     Route: 041

REACTIONS (5)
  - DERMATITIS ACNEIFORM [None]
  - HYPOMAGNESAEMIA [None]
  - XERODERMA [None]
  - SKIN FISSURES [None]
  - RASH [None]
